FAERS Safety Report 4473498-0 (Version None)
Quarter: 2004Q3

REPORT INFORMATION
  Report Type: 
  Country: None (occurrence: None)
  Receive Date: 20040921
  Receipt Date: 20040524
  Transmission Date: 20050211
  Serious: Yes (Other)
  Sender: FDA-Public Use
  Company Number: 2004034870

PATIENT
  Age: 9 Year
  Sex: Male

DRUGS (3)
  1. DILANTIN [Suspect]
     Indication: EPILEPSY
     Dosage: 200 MG (100 MG, 2 IN 1 D,
     Dates: end: 20040501
  2. BACTRIM [Suspect]
     Indication: EAR INFECTION
     Dates: end: 20040101
  3. PROMETHAZINE VC (PHENYLEPHRINE HYDROCHLORIDE, PROMETHAZINE HYDROCHLORI [Concomitant]

REACTIONS (5)
  - COUGH [None]
  - EAR INFECTION [None]
  - FURUNCLE [None]
  - NASOPHARYNGITIS [None]
  - STEVENS-JOHNSON SYNDROME [None]
